FAERS Safety Report 10449240 (Version 1)
Quarter: 2014Q3

REPORT INFORMATION
  Report Type: Spontaneous
  Country: US (occurrence: US)
  Receive Date: 20140912
  Receipt Date: 20140912
  Transmission Date: 20150326
  Serious: Yes (Other)
  Sender: FDA-Public Use
  Company Number: US-ROCHE-1459505

PATIENT
  Age: 77 Year
  Sex: Male

DRUGS (1)
  1. LUCENTIS [Suspect]
     Active Substance: RANIBIZUMAB
     Indication: AGE-RELATED MACULAR DEGENERATION
     Route: 050
     Dates: start: 2012

REACTIONS (11)
  - Retinal pigment epitheliopathy [Unknown]
  - Metamorphopsia [Unknown]
  - Blindness [Unknown]
  - Non-infectious endophthalmitis [Unknown]
  - Retinal detachment [Unknown]
  - Vitreous floaters [Unknown]
  - Conjunctival haemorrhage [Unknown]
  - Vitreous degeneration [Unknown]
  - Eye pain [Unknown]
  - Subretinal fluid [Unknown]
  - Retinopathy proliferative [Unknown]

NARRATIVE: CASE EVENT DATE: 20140130
